FAERS Safety Report 20032987 (Version 1)
Quarter: 2021Q4

REPORT INFORMATION
  Report Type: Report from Study
  Country: AR (occurrence: AR)
  Receive Date: 20211104
  Receipt Date: 20211104
  Transmission Date: 20220303
  Serious: Yes (Other)
  Sender: FDA-Public Use
  Company Number: AR-JNJFOC-20211060260

PATIENT
  Age: 43 Year
  Sex: Female
  Weight: 91 kg

DRUGS (1)
  1. SIMPONI [Suspect]
     Active Substance: GOLIMUMAB
     Indication: Rheumatoid arthritis
     Route: 058
     Dates: start: 20210805

REACTIONS (1)
  - American trypanosomiasis [Recovering/Resolving]

NARRATIVE: CASE EVENT DATE: 20210101
